FAERS Safety Report 5556129-8 (Version None)
Quarter: 2007Q4

REPORT INFORMATION
  Report Type: 
  Country: None (occurrence: None)
  Receive Date: 20071213
  Receipt Date: 20071207
  Transmission Date: 20080405
  Serious: Yes (Hospitalization, Other)
  Sender: FDA-Public Use
  Company Number: BE-MERCK-0711BEL00026

PATIENT
  Age: 67 Year
  Sex: Male
  Weight: 87 kg

DRUGS (5)
  1. COZAAR [Suspect]
     Indication: HYPERTENSION
     Route: 048
  2. SIMVASTATIN [Concomitant]
     Indication: HYPERCHOLESTEROLAEMIA
     Route: 048
  3. DIURETIC (UNSPECIFIED) [Concomitant]
     Indication: HYPERTENSION
     Route: 048
  4. [THERAPY UNSPECIFIED] [Concomitant]
     Indication: HYPERTENSION
     Route: 048
  5. [THERAPY UNSPECIFIED] [Concomitant]
     Route: 048

REACTIONS (2)
  - CORONARY ARTERY STENOSIS [None]
  - MITRAL VALVE STENOSIS [None]
